FAERS Safety Report 7536652-7 (Version None)
Quarter: 2011Q2

REPORT INFORMATION
  Report Type: 
  Country: None (occurrence: None)
  Receive Date: 20110609
  Receipt Date: 20110524
  Transmission Date: 20111010
  Serious: Yes (Death, Hospitalization)
  Sender: FDA-Public Use
  Company Number: A0790250A

PATIENT
  Age: 64 Year
  Sex: Male
  Weight: 97.7 kg

DRUGS (7)
  1. ADVAIR DISKUS 100/50 [Concomitant]
  2. METOPROLOL SUCCINATE [Concomitant]
  3. AVANDIA [Suspect]
     Indication: DIABETES MELLITUS
     Dosage: 8MG PER DAY
     Route: 048
     Dates: start: 20000101, end: 20051229
  4. ALTACE [Concomitant]
  5. PREVACID [Concomitant]
  6. PRIMATENE MIST [Concomitant]
  7. GLIPIZIDE [Concomitant]

REACTIONS (8)
  - MYOCARDIAL INFARCTION [None]
  - CEREBROVASCULAR ACCIDENT [None]
  - ATRIAL FIBRILLATION [None]
  - DEATH [None]
  - CORONARY ARTERY DISEASE [None]
  - MYOCARDIAL ISCHAEMIA [None]
  - CARDIAC FAILURE CONGESTIVE [None]
  - CARDIAC ARREST [None]
